FAERS Safety Report 12218567 (Version 1)
Quarter: 2016Q1

REPORT INFORMATION
  Report Type: Spontaneous
  Country: US (occurrence: US)
  Receive Date: 20160329
  Receipt Date: 20160329
  Transmission Date: 20160526
  Serious: No
  Sender: FDA-Public Use
  Company Number: US-BAUSCH-BL-2015-030652

PATIENT
  Age: 72 Year
  Sex: Female

DRUGS (2)
  1. ARMOUR THYROID [Concomitant]
     Active Substance: THYROID, PORCINE
     Indication: HYPOTHYROIDISM
     Dosage: QUARTER GRAIN
     Route: 048
  2. RENOVA [Suspect]
     Active Substance: TRETINOIN
     Indication: SKIN STRIAE
     Dosage: EVERY NIGHT AT BEDTIME
     Route: 061

REACTIONS (2)
  - Dry skin [Recovered/Resolved]
  - Skin exfoliation [Recovered/Resolved]
